FAERS Safety Report 18976045 (Version 1)
Quarter: 2021Q1

REPORT INFORMATION
  Report Type: Spontaneous
  Country: CN (occurrence: CN)
  Receive Date: 20210305
  Receipt Date: 20210305
  Transmission Date: 20210420
  Serious: Yes (Hospitalization)
  Sender: FDA-Public Use
  Company Number: CN-BAXTER-2021BAX004424

PATIENT
  Age: 3 Year
  Sex: Female
  Weight: 10.2 kg

DRUGS (12)
  1. ENDOXAN [Suspect]
     Active Substance: CYCLOPHOSPHAMIDE
     Indication: ACUTE LYMPHOCYTIC LEUKAEMIA
     Dosage: CYCLOPHOSPHAMIDE 100 MG + 0.9% SODIUM CHLORIDE INJECTION 250 ML
     Route: 041
     Dates: start: 20210207, end: 20210207
  2. 0.9% SODIUM CHLORIDE INJECTION [Suspect]
     Active Substance: SODIUM CHLORIDE
     Dosage: CYCLOPHOSPHAMIDE+ 0.9% SODIUM CHLORIDE, DOSE RE?INTRODUCED
     Route: 041
  3. DAUNORUBICIN HYDROCHLORIDE. [Suspect]
     Active Substance: DAUNORUBICIN HYDROCHLORIDE
     Indication: ACUTE LYMPHOCYTIC LEUKAEMIA
     Dosage: DAUNORUBICIN HYDROCHLORIDE 20 MG + 0.9% SODIUM CHLORIDE INJECTION 50 ML
     Route: 041
     Dates: start: 20210212, end: 20210212
  4. ENDOXAN [Suspect]
     Active Substance: CYCLOPHOSPHAMIDE
     Dosage: CYCLOPHOSPHAMIDE+ 0.9% SODIUM CHLORIDE, DOSE RE?INTRODUCED
     Route: 041
  5. 0.9% SODIUM CHLORIDE INJECTION [Suspect]
     Active Substance: SODIUM CHLORIDE
     Dosage: VINCRISTINE SULFATE 0.7 MG + 0.9% SODIUM CHLORIDE 50 ML
     Route: 041
     Dates: start: 20210203, end: 20210210
  6. 0.9% SODIUM CHLORIDE INJECTION [Suspect]
     Active Substance: SODIUM CHLORIDE
     Dosage: VINCRISTINE SULFATE+ 0.9% SODIUM CHLORIDE, DOSE RE?INTRODUCED
     Route: 041
  7. 0.9% SODIUM CHLORIDE INJECTION [Suspect]
     Active Substance: SODIUM CHLORIDE
     Indication: MEDICATION DILUTION
     Dosage: CYCLOPHOSPHAMIDE 100 MG + 0.9% SODIUM CHLORIDE 250 ML
     Route: 041
     Dates: start: 20210207, end: 20210207
  8. DAUNORUBICIN HYDROCHLORIDE. [Suspect]
     Active Substance: DAUNORUBICIN HYDROCHLORIDE
     Dosage: DAUNORUBICIN HYDROCHLORIDE+ 0.9% SODIUM CHLORIDE, DOSE RE?INTRODUCED
     Route: 041
  9. 0.9% SODIUM CHLORIDE INJECTION [Suspect]
     Active Substance: SODIUM CHLORIDE
     Dosage: DAUNORUBICIN HYDROCHLORIDE 20 MG + 0.9% SODIUM CHLORIDE 50 ML
     Route: 041
     Dates: start: 20210212, end: 20210212
  10. VINCRISTINE SULFATE. [Suspect]
     Active Substance: VINCRISTINE SULFATE
     Dosage: FREEZE?DRIED POWDER?VINCRISTINE SULFATE+ 0.9% SODIUM CHLORIDE INJECTION, DOSE RE?INTRODUCED
     Route: 041
  11. 0.9% SODIUM CHLORIDE INJECTION [Suspect]
     Active Substance: SODIUM CHLORIDE
     Dosage: DAUNORUBICIN HYDROCHLORIDE+ 0.9% SODIUM CHLORIDE, DOSE RE?INTRODUCED
     Route: 041
  12. VINCRISTINE SULFATE. [Suspect]
     Active Substance: VINCRISTINE SULFATE
     Indication: ACUTE LYMPHOCYTIC LEUKAEMIA
     Dosage: FREEZE?DRIED POWDER?VINCRISTINE SULFATE+ 0.9% SODIUM CHLORIDE INJECTION 50 ML
     Route: 041
     Dates: start: 20210203, end: 20210210

REACTIONS (1)
  - Myelosuppression [Recovering/Resolving]

NARRATIVE: CASE EVENT DATE: 20210215
